FAERS Safety Report 12680472 (Version 1)
Quarter: 2016Q3

REPORT INFORMATION
  Report Type: Spontaneous
  Country: IE (occurrence: IE)
  Receive Date: 20160824
  Receipt Date: 20160824
  Transmission Date: 20161109
  Serious: Yes (Death)
  Sender: FDA-Public Use
  Company Number: IE-PFIZER INC-2016399400

PATIENT
  Sex: Female

DRUGS (2)
  1. DISTACLOR /00480601/ [Concomitant]
     Indication: PHARYNGITIS
     Dosage: UNK, 2X/DAY
     Dates: start: 20110506
  2. SUTENT [Suspect]
     Active Substance: SUNITINIB MALATE
     Indication: MEDULLARY THYROID CANCER
     Dosage: 37.5 UNK, ON 4/2 SCHEDULE
     Dates: start: 20110506, end: 20111201

REACTIONS (1)
  - Death [Fatal]
